FAERS Safety Report 4635283-6 (Version None)
Quarter: 2005Q2

REPORT INFORMATION
  Report Type: 
  Country: None (occurrence: None)
  Receive Date: 20050414
  Receipt Date: 20050411
  Transmission Date: 20051028
  Serious: Yes (Life-Threatening)
  Sender: FDA-Public Use
  Company Number: PHBS2005JP05165

PATIENT
  Age: 60 Year
  Sex: Male

DRUGS (4)
  1. TOFRANIL [Suspect]
     Indication: DEPRESSION
     Route: 048
  2. TOFRANIL [Suspect]
     Dosage: 3 G, ONCE/SINGLE
     Route: 048
  3. ALPRAZOLAM [Concomitant]
  4. FLUNITRAZEPAM [Concomitant]

REACTIONS (3)
  - INTENTIONAL MISUSE [None]
  - SUICIDE ATTEMPT [None]
  - VENTRICULAR FIBRILLATION [None]
